FAERS Safety Report 15215761 (Version 1)
Quarter: 2018Q3

REPORT INFORMATION
  Report Type: Spontaneous
  Country: US (occurrence: US)
  Receive Date: 20180730
  Receipt Date: 20180730
  Transmission Date: 20181010
  Serious: No
  Sender: FDA-Public Use
  Company Number: US-ENDO PHARMACEUTICALS INC-2017-005208

PATIENT
  Age: 29 Year
  Sex: Female
  Weight: 58.96 kg

DRUGS (1)
  1. SUMAVEL DOSEPRO [Suspect]
     Active Substance: SUMATRIPTAN SUCCINATE
     Indication: MIGRAINE
     Dosage: UNK UNK, UNKNOWN
     Route: 065
     Dates: start: 201605

REACTIONS (3)
  - Product storage error [Unknown]
  - Injection site discolouration [Recovered/Resolved]
  - Parosmia [Recovered/Resolved]

NARRATIVE: CASE EVENT DATE: 201708
